FAERS Safety Report 23514197 (Version 4)
Quarter: 2024Q4

REPORT INFORMATION
  Report Type: Spontaneous
  Country: US (occurrence: US)
  Receive Date: 20240212
  Receipt Date: 20241210
  Transmission Date: 20250115
  Serious: No
  Sender: PFIZER
  Company Number: US-PFIZER INC-PV202400018807

PATIENT
  Age: 71 Year
  Sex: Male
  Weight: 108 kg

DRUGS (3)
  1. IBRANCE [Suspect]
     Active Substance: PALBOCICLIB
     Indication: Invasive ductal breast carcinoma
     Dosage: 125 MG, (ONE) TIME EACH DAY. TAKE ON DAYS 1-21 OF EACH 28-DAY CYCLE
     Route: 048
     Dates: start: 20210818
  2. IBRANCE [Suspect]
     Active Substance: PALBOCICLIB
     Indication: Breast cancer male
  3. LETROZOLE [Concomitant]
     Active Substance: LETROZOLE
     Dosage: UNK
     Dates: start: 20210818

REACTIONS (1)
  - Infection [Unknown]
